FAERS Safety Report 10297309 (Version 3)
Quarter: 2014Q4

REPORT INFORMATION
  Report Type: Spontaneous
  Country: US (occurrence: US)
  Receive Date: 20140711
  Receipt Date: 20141009
  Transmission Date: 20150528
  Serious: Yes (Hospitalization, Other)
  Sender: FDA-Public Use
  Company Number: US-009507513-1407USA002629

PATIENT
  Age: 22 Year
  Sex: Female
  Weight: 62.59 kg

DRUGS (1)
  1. NEXPLANON [Suspect]
     Active Substance: ETONOGESTREL
     Indication: CONTRACEPTION
     Dosage: 1 SINGLE ROD, LEFT ARM
     Route: 059
     Dates: start: 20140522, end: 201406

REACTIONS (6)
  - Medical device complication [Recovered/Resolved]
  - Pulmonary embolism [Unknown]
  - Deep vein thrombosis [Recovering/Resolving]
  - Oedema [Unknown]
  - Device difficult to use [Recovered/Resolved]
  - Device difficult to use [Recovered/Resolved]

NARRATIVE: CASE EVENT DATE: 2014
